FAERS Safety Report 4721476-6 (Version None)
Quarter: 2005Q3

REPORT INFORMATION
  Report Type: 
  Country: None (occurrence: None)
  Receive Date: 20050721
  Receipt Date: 20040930
  Transmission Date: 20060218
  Serious: Yes (Hospitalization)
  Sender: FDA-Public Use
  Company Number: US-BRISTOL-MYERS SQUIBB COMPANY-12718466

PATIENT
  Age: 47 Year
  Sex: Female

DRUGS (5)
  1. COUMADIN [Suspect]
     Indication: DEEP VEIN THROMBOSIS
     Route: 048
     Dates: start: 20040501
  2. LASIX [Concomitant]
  3. FOLIC ACID [Concomitant]
  4. LOMOTIL [Concomitant]
  5. NORTAB [Concomitant]

REACTIONS (1)
  - NECROSIS [None]
